FAERS Safety Report 17358939 (Version 12)
Quarter: 2025Q3

REPORT INFORMATION
  Report Type: Spontaneous
  Country: EU (occurrence: EU)
  Receive Date: 20200202
  Receipt Date: 20250818
  Transmission Date: 20251021
  Serious: Yes (Other)
  Sender: CELLTRION
  Company Number: EU-CELLTRION INC.-2020FR017588

PATIENT

DRUGS (46)
  1. INFLIXIMAB [Suspect]
     Active Substance: INFLIXIMAB
     Indication: Chronic graft versus host disease in intestine
  2. INFLIXIMAB [Suspect]
     Active Substance: INFLIXIMAB
     Indication: Chronic graft versus host disease in skin
  3. INFLIXIMAB [Suspect]
     Active Substance: INFLIXIMAB
     Indication: Graft versus host disease in lung
  4. INFLIXIMAB [Suspect]
     Active Substance: INFLIXIMAB
     Indication: Immunosuppression
  5. RITUXIMAB [Suspect]
     Active Substance: RITUXIMAB
     Indication: Immunosuppression
  6. RITUXIMAB [Suspect]
     Active Substance: RITUXIMAB
     Indication: Graft versus host disease in lung
  7. RITUXIMAB [Suspect]
     Active Substance: RITUXIMAB
     Indication: Chronic graft versus host disease in skin
  8. RITUXIMAB [Suspect]
     Active Substance: RITUXIMAB
     Indication: Chronic graft versus host disease in intestine
  9. LENOGRASTIM [Suspect]
     Active Substance: LENOGRASTIM
     Indication: Acute myeloid leukaemia
     Route: 065
  10. AMOXICILLIN [Suspect]
     Active Substance: AMOXICILLIN
     Indication: Antibiotic prophylaxis
  11. AMSACRINE [Suspect]
     Active Substance: AMSACRINE
     Indication: Acute myeloid leukaemia
  12. CYTARABINE [Suspect]
     Active Substance: CYTARABINE
     Indication: Acute myeloid leukaemia
  13. CYTARABINE [Suspect]
     Active Substance: CYTARABINE
     Indication: Chemotherapy
  14. CYTARABINE [Suspect]
     Active Substance: CYTARABINE
  15. CYTARABINE [Suspect]
     Active Substance: CYTARABINE
  16. CYTARABINE [Suspect]
     Active Substance: CYTARABINE
  17. BASILIXIMAB [Suspect]
     Active Substance: BASILIXIMAB
     Indication: Chronic graft versus host disease in skin
  18. BASILIXIMAB [Suspect]
     Active Substance: BASILIXIMAB
     Indication: Graft versus host disease in lung
  19. BASILIXIMAB [Suspect]
     Active Substance: BASILIXIMAB
     Indication: Chronic graft versus host disease in intestine
  20. BASILIXIMAB [Suspect]
     Active Substance: BASILIXIMAB
     Indication: Immunosuppression
  21. BUSULFAN [Suspect]
     Active Substance: BUSULFAN
     Indication: Product used for unknown indication
  22. CYCLOSPORINE [Suspect]
     Active Substance: CYCLOSPORINE
     Indication: Graft versus host disease
  23. CYCLOPHOSPHAMIDE ANHYDROUS [Suspect]
     Active Substance: CYCLOPHOSPHAMIDE ANHYDROUS
     Indication: Bone marrow conditioning regimen
  24. DAUNORUBICIN [Suspect]
     Active Substance: DAUNORUBICIN
     Indication: Acute myeloid leukaemia
  25. ETOPOSIDE [Suspect]
     Active Substance: ETOPOSIDE
     Indication: Acute myeloid leukaemia
  26. FLUDARABINE [Suspect]
     Active Substance: FLUDARABINE PHOSPHATE
     Indication: Acute myeloid leukaemia
  27. GRANULOCYTE COLONY-STIMULATING FACTOR NOS [Suspect]
     Active Substance: GRANULOCYTE COLONY-STIMULATING FACTOR NOS
     Indication: Acute myeloid leukaemia
  28. IDARUBICIN [Suspect]
     Active Substance: IDARUBICIN
     Indication: Acute myeloid leukaemia
  29. ASPARAGINASE [Suspect]
     Active Substance: ASPARAGINASE
     Indication: Acute myeloid leukaemia
  30. METHOTREXATE [Suspect]
     Active Substance: METHOTREXATE
     Indication: Graft versus host disease
  31. METHOTREXATE [Suspect]
     Active Substance: METHOTREXATE
     Indication: Prophylaxis against graft versus host disease
  32. MYCOPHENOLATE MOFETIL [Suspect]
     Active Substance: MYCOPHENOLATE MOFETIL
     Indication: Immunosuppression
  33. MYCOPHENOLATE MOFETIL [Suspect]
     Active Substance: MYCOPHENOLATE MOFETIL
     Indication: Acute graft versus host disease in skin
  34. MYCOPHENOLATE MOFETIL [Suspect]
     Active Substance: MYCOPHENOLATE MOFETIL
     Indication: Acute graft versus host disease in intestine
  35. NOVANTRONE [Suspect]
     Active Substance: MITOXANTRONE HYDROCHLORIDE
     Indication: Acute myeloid leukaemia
  36. PROGRAF [Suspect]
     Active Substance: TACROLIMUS
     Indication: Immunosuppression
     Route: 048
     Dates: start: 200906, end: 20101014
  37. PROGRAF [Suspect]
     Active Substance: TACROLIMUS
     Indication: Graft versus host disease
     Route: 048
     Dates: start: 200906, end: 20101014
  38. THYMOGLOBULIN [Suspect]
     Active Substance: LAPINE T-LYMPHOCYTE IMMUNE GLOBULIN
     Indication: Graft versus host disease
  39. THYMOGLOBULIN [Suspect]
     Active Substance: LAPINE T-LYMPHOCYTE IMMUNE GLOBULIN
     Indication: Prophylaxis against graft versus host disease
  40. ZOVIRAX [Suspect]
     Active Substance: ACYCLOVIR
     Indication: Product used for unknown indication
  41. AMPHOTERICIN B [Concomitant]
     Active Substance: AMPHOTERICIN B
  42. ACYCLOVIR [Concomitant]
     Active Substance: ACYCLOVIR
  43. CASPOFUNGIN [Concomitant]
     Active Substance: CASPOFUNGIN
  44. BETAMETHASONE SODIUM PHOSPHATE [Concomitant]
     Active Substance: BETAMETHASONE SODIUM PHOSPHATE
  45. TOLNAFTATE [Concomitant]
     Active Substance: TOLNAFTATE
  46. VORICONAZOLE [Concomitant]
     Active Substance: VORICONAZOLE

REACTIONS (11)
  - Acute graft versus host disease in intestine [Unknown]
  - Acute graft versus host disease in skin [Unknown]
  - Chronic graft versus host disease [Unknown]
  - Enamel anomaly [Unknown]
  - Gastrointestinal disorder [Unknown]
  - Skin lesion [Unknown]
  - Tooth disorder [Unknown]
  - Tooth hypoplasia [Not Recovered/Not Resolved]
  - Bronchopulmonary aspergillosis [Recovered/Resolved]
  - Mucormycosis [Recovered/Resolved]
  - Intentional product use issue [Unknown]
